FAERS Safety Report 8964293 (Version 1)
Quarter: 2012Q4

REPORT INFORMATION
  Report Type: 
  Country: US (occurrence: US)
  Receive Date: 20121214
  Receipt Date: 20121214
  Transmission Date: 20130627
  Serious: No
  Sender: FDA-Public Use
  Company Number: US-GLAXOSMITHKLINE-A0962699A

PATIENT
  Age: 60 Year
  Sex: Male

DRUGS (1)
  1. AVODART [Suspect]
     Indication: BENIGN PROSTATIC HYPERPLASIA
     Dosage: .5MG Per day
     Route: 048
     Dates: start: 20110922, end: 20120119

REACTIONS (5)
  - Dizziness [Unknown]
  - Asthenia [Unknown]
  - Muscle contractions involuntary [Unknown]
  - Arthralgia [Unknown]
  - Performance status decreased [Unknown]
